FAERS Safety Report 25267674 (Version 2)
Quarter: 2025Q2

REPORT INFORMATION
  Report Type: Spontaneous
  Country: IT (occurrence: IT)
  Receive Date: 20250505
  Receipt Date: 20250515
  Transmission Date: 20250717
  Serious: Yes (Death, Hospitalization)
  Sender: TEVA
  Company Number: IT-TEVA-VS-3327447

PATIENT
  Age: 62 Year
  Sex: Female

DRUGS (9)
  1. PREDNISONE [Suspect]
     Active Substance: PREDNISONE
     Indication: Hepatotoxicity
     Route: 065
  2. PREDNISONE [Suspect]
     Active Substance: PREDNISONE
     Indication: Hepatotoxicity
     Dosage: DOSE REDUCED
     Route: 065
  3. PACLITAXEL [Suspect]
     Active Substance: PACLITAXEL
     Indication: Squamous cell carcinoma of skin
     Route: 065
     Dates: start: 202303
  4. MITOMYCIN [Suspect]
     Active Substance: MITOMYCIN
     Indication: Squamous cell carcinoma of skin
     Route: 065
     Dates: start: 202209
  5. CARBOPLATIN [Suspect]
     Active Substance: CARBOPLATIN
     Indication: Squamous cell carcinoma of skin
     Route: 065
     Dates: start: 202303
  6. FLUOROURACIL [Suspect]
     Active Substance: FLUOROURACIL
     Indication: Squamous cell carcinoma of skin
     Route: 065
     Dates: start: 202209
  7. METHYLPREDNISOLONE [Suspect]
     Active Substance: METHYLPREDNISOLONE
     Indication: Hepatotoxicity
     Route: 042
  8. CEMIPLIMAB [Suspect]
     Active Substance: CEMIPLIMAB
     Indication: Squamous cell carcinoma of skin
     Route: 042
     Dates: start: 202111
  9. CEMIPLIMAB [Suspect]
     Active Substance: CEMIPLIMAB
     Indication: Squamous cell carcinoma of skin
     Route: 042
     Dates: end: 202209

REACTIONS (5)
  - Drug ineffective [Fatal]
  - Hyperglycaemia [Recovering/Resolving]
  - Type 1 diabetes mellitus [Recovering/Resolving]
  - Hepatotoxicity [Recovering/Resolving]
  - Diabetic ketoacidosis [Recovering/Resolving]
